FAERS Safety Report 24297340 (Version 2)
Quarter: 2024Q3

REPORT INFORMATION
  Report Type: Spontaneous
  Country: FR (occurrence: FR)
  Receive Date: 20240909
  Receipt Date: 20240919
  Transmission Date: 20241017
  Serious: Yes (Other)
  Sender: NOVARTIS
  Company Number: NL-Daleco-2024-FR-000011

PATIENT
  Age: 74 Year
  Sex: Male
  Weight: 87 kg

DRUGS (8)
  1. TEGRETOL [Suspect]
     Active Substance: CARBAMAZEPINE
     Indication: Product used for unknown indication
     Dosage: 500 MG, QD (1 COMPRIME LE MATIN ET 1,5 LE SOIR)
     Route: 065
  2. VALSARTAN [Suspect]
     Active Substance: VALSARTAN
     Indication: Product used for unknown indication
     Dosage: 80 MG, Q12H (TABLET) (~^S MORGENS EN ^S AVONDS 1 TABLET)
     Route: 065
  3. BISOPROLOL FUMARATE [Suspect]
     Active Substance: BISOPROLOL FUMARATE
     Indication: Product used for unknown indication
     Dosage: 1 DOSAGE FORM, QD (1 TABLET LE MATIN)
     Route: 065
  4. TRANYLCYPROMINE SULFATE [Suspect]
     Active Substance: TRANYLCYPROMINE SULFATE
     Indication: Depression
     Dosage: 1.5 DOSAGE FORM, Q12H (30 MG ^S (1,5 TABLET)  MORGENS EN 30 MG (1,5 TABLET) ^S MIDDAGS)
     Route: 065
  5. RAMIPRIL [Suspect]
     Active Substance: RAMIPRIL
     Indication: Product used for unknown indication
     Dosage: 2.5 MG, QD (2.5 MG 1 TABLET LE MATIN)
     Route: 065
  6. CLOPIDOGREL [Suspect]
     Active Substance: CLOPIDOGREL BISULFATE
     Indication: Product used for unknown indication
     Dosage: 1 DOSAGE FORM, QD (1X LE MATINUNTIL SEPTEMBER 2024)
     Route: 065
     Dates: end: 20240731
  7. LIPTRUZET [Suspect]
     Active Substance: ATORVASTATIN CALCIUM\EZETIMIBE
     Indication: Product used for unknown indication
     Dosage: 1 DOSAGE FORM, QD (1X LE SOIR)10/80
     Route: 065
  8. PANTOPRAZOLE [Suspect]
     Active Substance: PANTOPRAZOLE
     Indication: Product used for unknown indication
     Dosage: 1 DOSAGE FORM, QD (1X LE SOIR)
     Route: 065

REACTIONS (8)
  - Transient ischaemic attack [Unknown]
  - Myocardial infarction [Recovered/Resolved with Sequelae]
  - Muscle spasms [Recovered/Resolved]
  - Asthenia [Recovering/Resolving]
  - Contusion [Not Recovered/Not Resolved]
  - Insomnia [Recovered/Resolved]
  - Blood pressure increased [Not Recovered/Not Resolved]
  - Contraindicated product administered [Not Recovered/Not Resolved]

NARRATIVE: CASE EVENT DATE: 20030101
